FAERS Safety Report 14636822 (Version 1)
Quarter: 2018Q1

REPORT INFORMATION
  Report Type: Spontaneous
  Country: US (occurrence: US)
  Receive Date: 20180314
  Receipt Date: 20180314
  Transmission Date: 20180509
  Serious: Yes (Other)
  Sender: FDA-Public Use
  Company Number: US-PURDUE-USA-2018-0142753

PATIENT
  Sex: Male
  Weight: 61.22 kg

DRUGS (3)
  1. OXYCODONE/ ACETAMINOPHEN TABLETS [Suspect]
     Active Substance: ACETAMINOPHEN\OXYCODONE HYDROCHLORIDE
     Indication: PROCEDURAL PAIN
     Dosage: UNK, TID- QID
     Route: 048
     Dates: start: 2010
  2. ROXICODONE [Suspect]
     Active Substance: OXYCODONE HYDROCHLORIDE
     Indication: PRODUCT USED FOR UNKNOWN INDICATION
     Route: 065
  3. FENTANYL. [Suspect]
     Active Substance: FENTANYL
     Indication: PRODUCT USED FOR UNKNOWN INDICATION
     Route: 065

REACTIONS (5)
  - Impaired healing [Unknown]
  - Drug abuse [Not Recovered/Not Resolved]
  - Pain [Unknown]
  - Suicide threat [Unknown]
  - Drug dependence [Not Recovered/Not Resolved]
